FAERS Safety Report 25123144 (Version 1)
Quarter: 2025Q1

REPORT INFORMATION
  Report Type: Spontaneous
  Country: US (occurrence: US)
  Receive Date: 20250326
  Receipt Date: 20250326
  Transmission Date: 20250409
  Serious: Yes (Other)
  Sender: HIKMA
  Company Number: US-HIKMA PHARMACEUTICALS USA INC.-US-H14001-25-02555

PATIENT
  Age: 18 Year
  Sex: Female

DRUGS (1)
  1. TESTOSTERONE ENANTHATE [Suspect]
     Active Substance: TESTOSTERONE ENANTHATE
     Indication: Gender reassignment therapy
     Dosage: 25 MILLIGRAM/SQ. METER/ 2 WEEKS
     Route: 065

REACTIONS (2)
  - Autoimmune thyroiditis [Unknown]
  - Low density lipoprotein increased [Unknown]
